FAERS Safety Report 7476521-4 (Version None)
Quarter: 2011Q2

REPORT INFORMATION
  Report Type: 
  Country: None (occurrence: None)
  Receive Date: 20110512
  Receipt Date: 20110509
  Transmission Date: 20111010
  Serious: Yes (Other)
  Sender: FDA-Public Use
  Company Number: PHHY2011US35047

PATIENT
  Sex: Female

DRUGS (5)
  1. IBUPROFEN [Concomitant]
  2. NORVASC [Concomitant]
  3. VITAMIN C [Concomitant]
  4. GLEEVEC [Suspect]
     Indication: CHRONIC MYELOID LEUKAEMIA
     Dosage: 400 MG, DAILY
     Route: 048
     Dates: start: 20091001
  5. ZINC [Concomitant]

REACTIONS (6)
  - FUNGAL INFECTION [None]
  - TYMPANIC MEMBRANE DISORDER [None]
  - EAR INFECTION [None]
  - DRY MOUTH [None]
  - IMMUNODEFICIENCY [None]
  - VERTIGO [None]
